FAERS Safety Report 12442364 (Version 5)
Quarter: 2016Q3

REPORT INFORMATION
  Report Type: Report from Study
  Country: AU (occurrence: AU)
  Receive Date: 20160607
  Receipt Date: 20160815
  Transmission Date: 20161109
  Serious: Yes (Hospitalization)
  Sender: FDA-Public Use
  Company Number: AU-AMGEN-AUSSP2016071405

PATIENT
  Age: 63 Year
  Sex: Female

DRUGS (6)
  1. CYCLOPHOSPHAMIDE. [Concomitant]
     Active Substance: CYCLOPHOSPHAMIDE
     Dosage: CYCLO 5 CHANGE TO DAY 1, 8, 15
  2. CARFILZOMIB [Suspect]
     Active Substance: CARFILZOMIB
     Dosage: 27 MG/M2, DAY 1, 8 AND 15
     Route: 065
  3. CYCLOPHOSPHAMIDE. [Concomitant]
     Active Substance: CYCLOPHOSPHAMIDE
     Dosage: 400 MG, UNK
  4. CARFILZOMIB [Suspect]
     Active Substance: CARFILZOMIB
     Dosage: 27 MG/M2, CYCLE TWO ONWARD
     Route: 065
  5. CARFILZOMIB [Suspect]
     Active Substance: CARFILZOMIB
     Indication: PLASMA CELL MYELOMA
     Dosage: 20 MG/M2, UNK
     Route: 065
     Dates: start: 201601
  6. CARFILZOMIB [Suspect]
     Active Substance: CARFILZOMIB
     Dosage: UNK
     Route: 065

REACTIONS (10)
  - Vomiting [Unknown]
  - Blood creatinine increased [Unknown]
  - Pyrexia [Recovered/Resolved]
  - Emotional disorder [Unknown]
  - Fluid retention [Unknown]
  - Chills [Unknown]
  - Urinary tract infection [Unknown]
  - Fatigue [Recovering/Resolving]
  - Bladder disorder [Unknown]
  - Nausea [Unknown]

NARRATIVE: CASE EVENT DATE: 2016
